FAERS Safety Report 5802381-0 (Version None)
Quarter: 2008Q3

REPORT INFORMATION
  Report Type: 
  Country: None (occurrence: None)
  Receive Date: 20080707
  Receipt Date: 20080625
  Transmission Date: 20090109
  Serious: Yes (Other)
  Sender: FDA-Public Use
  Company Number: US-GENENTECH-262231

PATIENT
  Sex: Female
  Weight: 65.76 kg

DRUGS (1)
  1. RITUXAN [Suspect]
     Indication: WEGENER'S GRANULOMATOSIS
     Dosage: 1 G, UNK
     Route: 042
     Dates: start: 20050718

REACTIONS (2)
  - BLOOD IMMUNOGLOBULIN G DECREASED [None]
  - SKIN INFECTION [None]
